FAERS Safety Report 9197616 (Version 1)
Quarter: 2013Q1

REPORT INFORMATION
  Report Type: Spontaneous
  Country: US (occurrence: US)
  Receive Date: 20130328
  Receipt Date: 20130328
  Transmission Date: 20140127
  Serious: Yes (Hospitalization)
  Sender: FDA-Public Use
  Company Number: US-BAYER-2013-035407

PATIENT
  Age: 38 Year
  Sex: Female
  Weight: 113 kg

DRUGS (10)
  1. YAZ [Suspect]
  2. YASMIN [Suspect]
     Indication: ENDOMETRIOSIS
  3. NEURONTIN [Concomitant]
  4. DARVOCET [Concomitant]
  5. MIRAPEX [Concomitant]
  6. LORAZEPAM [Concomitant]
  7. ZANAFLEX [Concomitant]
  8. FLEXERIL [Concomitant]
  9. DEMEROL [Concomitant]
     Indication: PAIN
  10. VISTARIL [Concomitant]
     Indication: PAIN

REACTIONS (1)
  - Deep vein thrombosis [Recovered/Resolved]
